FAERS Safety Report 23059702 (Version 1)
Quarter: 2023Q4

REPORT INFORMATION
  Report Type: Spontaneous
  Country: CZ (occurrence: CZ)
  Receive Date: 20231012
  Receipt Date: 20231012
  Transmission Date: 20240110
  Serious: Yes (Other)
  Sender: FDA-Public Use
  Company Number: CZ-002147023-NVSC2023CZ220080

PATIENT
  Age: 1 Year
  Sex: Female

DRUGS (1)
  1. ALPELISIB [Suspect]
     Active Substance: ALPELISIB
     Indication: Vascular malformation
     Dosage: 80 MG, QD
     Route: 065

REACTIONS (4)
  - Vascular malformation [Unknown]
  - Disease progression [Unknown]
  - Product use issue [Unknown]
  - Product use in unapproved indication [Unknown]
